FAERS Safety Report 7542406-8 (Version None)
Quarter: 2011Q2

REPORT INFORMATION
  Report Type: 
  Country: None (occurrence: None)
  Receive Date: 20110524
  Receipt Date: 20110209
  Transmission Date: 20111010
  Serious: No
  Sender: FDA-Public Use
  Company Number: 009952

PATIENT
  Sex: Female

DRUGS (1)
  1. CIMZIA [Suspect]
     Indication: CROHN'S DISEASE
     Dosage: 400 MG 1X/MONTH, 400 MG SUBCUTANEOUS
     Route: 058
     Dates: start: 20090618

REACTIONS (2)
  - PREGNANCY [None]
  - DRUG DOSE OMISSION [None]
